FAERS Safety Report 6203124-1 (Version None)
Quarter: 2009Q2

REPORT INFORMATION
  Report Type: 
  Country: None (occurrence: None)
  Receive Date: 20090527
  Receipt Date: 20090519
  Transmission Date: 20091009
  Serious: Yes (Other)
  Sender: FDA-Public Use
  Company Number: US-BAXTER-2008BH001658

PATIENT
  Age: 4 Year
  Sex: Male

DRUGS (2)
  1. ADVATE [Suspect]
     Indication: FACTOR VIII DEFICIENCY
     Dosage: DOSE UNIT:UNKNOWN
     Route: 042
     Dates: start: 20080215
  2. ROCEPHIN [Suspect]
     Indication: CENTRAL LINE INFECTION
     Route: 042
     Dates: start: 20080216, end: 20080216

REACTIONS (6)
  - DYSTONIA [None]
  - HYPOKINESIA [None]
  - MUSCLE TIGHTNESS [None]
  - MYDRIASIS [None]
  - PARAESTHESIA [None]
  - UNRESPONSIVE TO STIMULI [None]
